FAERS Safety Report 12817783 (Version 1)
Quarter: 2016Q4

REPORT INFORMATION
  Report Type: Other
  Country: BA (occurrence: BA)
  Receive Date: 20161006
  Receipt Date: 20161006
  Transmission Date: 20170207
  Serious: Yes (Hospitalization)
  Sender: FDA-Public Use
  Company Number: BA-LUPIN PHARMACEUTICALS INC.-2016-04455

PATIENT
  Age: 22 Year
  Sex: Female

DRUGS (1)
  1. CIPROFLOXACIN. [Suspect]
     Active Substance: CIPROFLOXACIN
     Indication: EAR INFECTION
     Route: 065

REACTIONS (1)
  - Extrapyramidal disorder [Recovered/Resolved]
